FAERS Safety Report 8156281-4 (Version None)
Quarter: 2012Q1

REPORT INFORMATION
  Report Type: 
  Country: None (occurrence: None)
  Receive Date: 20120222
  Receipt Date: 20120213
  Transmission Date: 20120608
  Serious: Yes (Hospitalization, Other)
  Sender: FDA-Public Use
  Company Number: US-SANOFI-AVENTIS-2012SA009621

PATIENT
  Sex: Female

DRUGS (4)
  1. ADVAIR DISKUS 100/50 [Suspect]
  2. NASACORT AQ [Suspect]
     Route: 045
     Dates: end: 20110901
  3. NASACORT AQ [Suspect]
     Indication: ASTHMA
     Route: 045
     Dates: end: 20110901
  4. ADVAIR DISKUS 100/50 [Suspect]
     Indication: ASTHMA

REACTIONS (4)
  - RECTAL HAEMORRHAGE [None]
  - GALLBLADDER DISORDER [None]
  - ANGINA PECTORIS [None]
  - WEIGHT DECREASED [None]
